FAERS Safety Report 9291383 (Version 4)
Quarter: 2014Q3

REPORT INFORMATION
  Report Type: Spontaneous
  Country: US (occurrence: US)
  Receive Date: 20130515
  Receipt Date: 20140804
  Transmission Date: 20150326
  Serious: No
  Sender: FDA-Public Use
  Company Number: US-009507513-1305USA009299

PATIENT
  Sex: Male
  Weight: 106.12 kg

DRUGS (5)
  1. PROSCAR [Suspect]
     Active Substance: FINASTERIDE
     Indication: ALOPECIA
     Dosage: 5 MG, QD CUT INTO 1/4
     Route: 048
     Dates: start: 199707, end: 201106
  2. FINASTERIDE. [Suspect]
     Active Substance: FINASTERIDE
     Dosage: 5 MG, QD
     Route: 048
     Dates: start: 20060803, end: 20060919
  3. PROSCAR [Suspect]
     Active Substance: FINASTERIDE
     Dosage: 5 MG, QD
     Route: 048
     Dates: start: 20041224, end: 20050510
  4. FINASTERIDE. [Suspect]
     Active Substance: FINASTERIDE
     Indication: ALOPECIA
     Dosage: 5 MG, QD CUT IN 1/4
     Route: 048
     Dates: start: 199707, end: 201106
  5. PROPECIA [Suspect]
     Active Substance: FINASTERIDE
     Indication: ALOPECIA
     Dosage: 1 MG, QD
     Route: 048
     Dates: start: 199707, end: 201106

REACTIONS (27)
  - Essential hypertension [Unknown]
  - Loss of libido [Not Recovered/Not Resolved]
  - Weight increased [Unknown]
  - Wrong technique in drug usage process [Unknown]
  - Aortic valve incompetence [Unknown]
  - Fatigue [Unknown]
  - Hypercholesterolaemia [Unknown]
  - Insomnia [Unknown]
  - Dermal cyst [Unknown]
  - Drug administration error [Unknown]
  - Generalised anxiety disorder [Unknown]
  - Hypothyroidism [Unknown]
  - Hyperhidrosis [Unknown]
  - Polypectomy [Unknown]
  - Tonsillectomy [Unknown]
  - Dry mouth [Unknown]
  - Depression [Not Recovered/Not Resolved]
  - Nervous system disorder [Not Recovered/Not Resolved]
  - Hormone level abnormal [Not Recovered/Not Resolved]
  - Anxiety [Not Recovered/Not Resolved]
  - Sexual dysfunction [Not Recovered/Not Resolved]
  - Penis injury [Not Recovered/Not Resolved]
  - Ligament sprain [Unknown]
  - Cardiac murmur [Unknown]
  - Cyst removal [Unknown]
  - Erectile dysfunction [Not Recovered/Not Resolved]
  - Depression [Unknown]

NARRATIVE: CASE EVENT DATE: 1999
